FAERS Safety Report 9889045 (Version 1)
Quarter: 2014Q1

REPORT INFORMATION
  Report Type: Spontaneous
  Country: US (occurrence: US)
  Receive Date: 20140211
  Receipt Date: 20140211
  Transmission Date: 20141002
  Serious: No
  Sender: FDA-Public Use
  Company Number: US-BAYER-2014-015073

PATIENT
  Age: 78 Year
  Sex: Female
  Weight: 77 kg

DRUGS (2)
  1. ALEVE TABLET [Suspect]
     Indication: BACK PAIN
     Dosage: UNK
     Route: 048
     Dates: end: 20140125
  2. SYNTHROID [Concomitant]

REACTIONS (5)
  - Rash [Recovered/Resolved]
  - Urticaria [Recovered/Resolved]
  - Swelling [Recovered/Resolved]
  - Abnormal sensation in eye [Not Recovered/Not Resolved]
  - Diarrhoea [Recovered/Resolved]
